FAERS Safety Report 6869708-2 (Version None)
Quarter: 2010Q3

REPORT INFORMATION
  Report Type: 
  Country: None (occurrence: None)
  Receive Date: 20100722
  Receipt Date: 20080812
  Transmission Date: 20110219
  Serious: No
  Sender: FDA-Public Use
  Company Number: US-PFIZER INC-2008067588

PATIENT
  Sex: Female

DRUGS (9)
  1. CHANTIX [Suspect]
     Indication: SMOKING CESSATION THERAPY
  2. LYRICA [Concomitant]
  3. ALLEGRA D 24 HOUR [Concomitant]
  4. MONTELUKAST SODIUM [Concomitant]
  5. VALIUM [Concomitant]
  6. FUROSEMIDE [Concomitant]
  7. AMITRIPTYLINE HYDROCHLORIDE [Concomitant]
  8. ULTRAM [Concomitant]
  9. FENTANYL [Concomitant]

REACTIONS (1)
  - DRUG INEFFECTIVE [None]
